FAERS Safety Report 7781800-7 (Version None)
Quarter: 2011Q3

REPORT INFORMATION
  Report Type: 
  Country: None (occurrence: None)
  Receive Date: 20110927
  Receipt Date: 20110920
  Transmission Date: 20111222
  Serious: Yes (Other)
  Sender: FDA-Public Use
  Company Number: GB-GLAXOSMITHKLINE-B0748583A

PATIENT
  Age: 32 Year
  Sex: Female

DRUGS (1)
  1. PAROXETINE [Suspect]
     Indication: INSOMNIA
     Route: 065

REACTIONS (1)
  - PSYCHIATRIC SYMPTOM [None]
